FAERS Safety Report 9766205 (Version 1)
Quarter: 2013Q4

REPORT INFORMATION
  Report Type: Spontaneous
  Country: FR (occurrence: FR)
  Receive Date: 20131217
  Receipt Date: 20131217
  Transmission Date: 20140711
  Serious: Yes (Other)
  Sender: FDA-Public Use
  Company Number: FR-JNJFOC-20131207025

PATIENT
  Sex: 0

DRUGS (3)
  1. KETOCONAZOLE [Suspect]
     Indication: CUSHING^S SYNDROME
     Dosage: 200-1200 MG/DAY
     Route: 065
  2. MITOTANE [Interacting]
     Indication: PRODUCT USED FOR UNKNOWN INDICATION
     Route: 065
  3. ATORVASTATIN [Interacting]
     Indication: PRODUCT USED FOR UNKNOWN INDICATION
     Route: 065

REACTIONS (8)
  - Hepatotoxicity [Unknown]
  - Hepatitis [Unknown]
  - Cholestasis [Unknown]
  - Hepatic enzyme increased [Unknown]
  - Off label use [Unknown]
  - Drug interaction [Unknown]
  - Gastrointestinal disorder [Unknown]
  - Pruritus [Unknown]
